FAERS Safety Report 10889084 (Version 2)
Quarter: 2016Q2

REPORT INFORMATION
  Report Type: Report from Study
  Country: IT (occurrence: IT)
  Receive Date: 20150305
  Receipt Date: 20160428
  Transmission Date: 20160815
  Serious: Yes (Death)
  Sender: FDA-Public Use
  Company Number: IT-BAXTER-2015BAX012605

PATIENT

DRUGS (4)
  1. SEVOFLURANE BAXTER [Suspect]
     Active Substance: SEVOFLURANE
     Indication: MAINTENANCE OF ANAESTHESIA
     Dosage: 1-2%
     Route: 055
  2. FENTANYL. [Suspect]
     Active Substance: FENTANYL
     Indication: MAINTENANCE OF ANAESTHESIA
     Dosage: 1 TO 2 MICROGRAM PER KG
     Route: 040
  3. FENTANYL. [Suspect]
     Active Substance: FENTANYL
     Indication: INDUCTION OF ANAESTHESIA
     Dosage: 1 TO 2 MICROGRAM PER KG
     Route: 065
  4. PROPOFOL. [Suspect]
     Active Substance: PROPOFOL
     Indication: INDUCTION OF ANAESTHESIA
     Route: 065

REACTIONS (1)
  - Death [Fatal]
